FAERS Safety Report 7982587-5 (Version None)
Quarter: 2011Q4

REPORT INFORMATION
  Report Type: 
  Country: None (occurrence: None)
  Receive Date: 20111215
  Receipt Date: 20111206
  Transmission Date: 20120403
  Serious: Yes (Other)
  Sender: FDA-Public Use
  Company Number: CA-GLAXOSMITHKLINE-A0951444A

PATIENT
  Sex: Female
  Weight: 89.5 kg

DRUGS (3)
  1. METOPROLOL TARTRATE [Concomitant]
     Dosage: 2TAB TWICE PER DAY
  2. ADVAIR DISKUS 100/50 [Suspect]
     Indication: CHRONIC OBSTRUCTIVE PULMONARY DISEASE
     Dosage: 1PUFF TWICE PER DAY
     Route: 055
     Dates: start: 20050101
  3. WATER PILL [Concomitant]
     Dosage: 2TAB TWICE PER DAY
     Route: 065

REACTIONS (14)
  - COUGH [None]
  - RASH [None]
  - LOWER RESPIRATORY TRACT INFECTION [None]
  - CHEST PAIN [None]
  - FLUID RETENTION [None]
  - RASH PAPULAR [None]
  - APHASIA [None]
  - INCREASED UPPER AIRWAY SECRETION [None]
  - DIZZINESS [None]
  - FATIGUE [None]
  - HYPERTENSION [None]
  - ATRIAL FIBRILLATION [None]
  - ASTHENIA [None]
  - DYSPNOEA [None]
